FAERS Safety Report 13258517 (Version 5)
Quarter: 2017Q3

REPORT INFORMATION
  Report Type: Report from Study
  Country: ES (occurrence: ES)
  Receive Date: 20170222
  Receipt Date: 20170804
  Transmission Date: 20171127
  Serious: Yes (Other)
  Sender: FDA-Public Use
  Company Number: ES-ROCHE-1897094

PATIENT
  Age: 71 Year
  Sex: Male
  Weight: 70.5 kg

DRUGS (2)
  1. FOLIC ACID. [Concomitant]
     Active Substance: FOLIC ACID
  2. TOCILIZUMAB. [Suspect]
     Active Substance: TOCILIZUMAB
     Indication: ANTI-NEUTROPHIL CYTOPLASMIC ANTIBODY POSITIVE VASCULITIS
     Route: 058
     Dates: start: 20151202, end: 20161103

REACTIONS (1)
  - Chondritis [Not Recovered/Not Resolved]

NARRATIVE: CASE EVENT DATE: 20170210
